FAERS Safety Report 7569880-5 (Version None)
Quarter: 2011Q2

REPORT INFORMATION
  Report Type: 
  Country: None (occurrence: None)
  Receive Date: 20110622
  Receipt Date: 20110622
  Transmission Date: 20111010
  Serious: No
  Sender: FDA-Public Use
  Company Number: None

PATIENT
  Sex: Male
  Weight: 85.9 kg

DRUGS (2)
  1. PEGASYS [Suspect]
     Indication: HEPATITIS C
     Dosage: 180 MCG EVERY WEEK SQ INJECTION
     Route: 058
     Dates: start: 20110307
  2. RIBAVARIN [Suspect]
     Dosage: 200MG X 2 TABS BID PO
     Route: 048
     Dates: start: 20110307

REACTIONS (5)
  - HYPOAESTHESIA FACIAL [None]
  - OROPHARYNGEAL BLISTERING [None]
  - DIZZINESS [None]
  - OROPHARYNGEAL PAIN [None]
  - HYPOAESTHESIA [None]
